FAERS Safety Report 20139105 (Version 1)
Quarter: 2021Q4

REPORT INFORMATION
  Report Type: Spontaneous
  Country: DE (occurrence: DE)
  Receive Date: 20211202
  Receipt Date: 20211202
  Transmission Date: 20220304
  Serious: Yes (Other)
  Sender: FDA-Public Use
  Company Number: DE-MYLANLABS-2021M1088720

PATIENT
  Sex: Male

DRUGS (5)
  1. BUPRENORPHINE [Interacting]
     Active Substance: BUPRENORPHINE
     Indication: Drug use disorder
     Dosage: UNK, LONG-TERM OPIOID MAINTENANCE THERAPY
     Route: 065
  2. BUPRENORPHINE [Interacting]
     Active Substance: BUPRENORPHINE
     Dosage: 7 TO 10 MG DAILY OVER A COURSE OF 6 YEARS STARTING 2012
     Route: 065
  3. BUPRENORPHINE [Interacting]
     Active Substance: BUPRENORPHINE
     Dosage: UNK, DOSE INCREASED
     Route: 065
  4. CANNABIS SATIVA SUBSP. INDICA TOP [Interacting]
     Active Substance: CANNABIS SATIVA SUBSP. INDICA TOP
     Indication: Product used for unknown indication
     Dosage: UNK
     Route: 065
  5. PREGABALIN [Concomitant]
     Active Substance: PREGABALIN
     Indication: Product used for unknown indication
     Dosage: 300 MILLIGRAM, QD
     Route: 065

REACTIONS (3)
  - Drug dependence [Not Recovered/Not Resolved]
  - Drug level increased [Recovering/Resolving]
  - Drug interaction [Recovering/Resolving]
